FAERS Safety Report 4999908-8 (Version None)
Quarter: 2006Q2

REPORT INFORMATION
  Report Type: 
  Country: None (occurrence: None)
  Receive Date: 20060509
  Receipt Date: 20060425
  Transmission Date: 20061013
  Serious: Yes (Life-Threatening, Hospitalization)
  Sender: FDA-Public Use
  Company Number: DE200603002743

PATIENT
  Age: 81 Year
  Sex: Female
  Weight: 70 kg

DRUGS (2)
  1. DULOXETINE HYDROCHLORIDE (DULOXETINE HYDROCHLORIDE ) CAPSULE [Suspect]
     Indication: STRESS INCONTINENCE
     Dosage: 20 MG, DAILY (1/D), ORAL; SEE IMAGE
     Route: 048
     Dates: start: 20060210, end: 20060221
  2. DULOXETINE HYDROCHLORIDE (DULOXETINE HYDROCHLORIDE ) CAPSULE [Suspect]
     Indication: STRESS INCONTINENCE
     Dosage: 20 MG, DAILY (1/D), ORAL; SEE IMAGE
     Route: 048
     Dates: start: 20060222, end: 20060224

REACTIONS (5)
  - ACUTE ABDOMEN [None]
  - DYSURIA [None]
  - HEPATIC CYST [None]
  - SUBILEUS [None]
  - URINARY RETENTION [None]
